FAERS Safety Report 15586686 (Version 1)
Quarter: 2018Q4

REPORT INFORMATION
  Report Type: Spontaneous
  Country: US (occurrence: US)
  Receive Date: 20181105
  Receipt Date: 20181105
  Transmission Date: 20190205
  Serious: No
  Sender: FDA-Public Use
  Company Number: None

PATIENT
  Age: 55 Year
  Sex: Female
  Weight: 77.4 kg

DRUGS (11)
  1. ZANTAC 150 MG BID [Concomitant]
     Dates: start: 20180221
  2. EFFEXOR XR 150MG - 1 TABLET EVERY DAY [Concomitant]
     Dates: start: 20120910
  3. CALCIUM + D [Concomitant]
     Active Substance: CALCIUM\VITAMIN D
     Dates: start: 20120910
  4. IPRATROPIUM NASAL SPRAY 0.03% 2 SPRAYS TID [Concomitant]
     Dates: start: 20160126
  5. VITAMIN D3- 5000 IU EVERY OTHER DAY ORALLY [Concomitant]
     Dates: start: 20170731
  6. AZELASTINE 137 MCG - 2 SPRAYS TO EACH NOSTRIL ONCE TO TWICE A DAY [Concomitant]
     Dates: start: 20160127
  7. ACIDOPHILUS - ONCE A DAY [Concomitant]
     Dates: start: 20150127
  8. TAKHZYRO [Suspect]
     Active Substance: LANADELUMAB-FLYO
     Indication: HEREDITARY ANGIOEDEMA
     Dosage: ?          OTHER FREQUENCY:EVERY 2 WEEKS;?
     Route: 058
     Dates: start: 20181016, end: 20181024
  9. FIRAZYR 30MG/3ML SYRINGE SQ IN ABDOMEN PRN [Concomitant]
     Dates: start: 20180122
  10. PLAQUENIL 200 MG - ONE TABLET BID [Concomitant]
     Dates: start: 20120910
  11. CELLCEPT 500 MG- 2 TABS ONCE A DAY [Concomitant]
     Dates: start: 20120910

REACTIONS (2)
  - Exfoliative rash [None]
  - Rash erythematous [None]

NARRATIVE: CASE EVENT DATE: 20181019
